FAERS Safety Report 15384971 (Version 2)
Quarter: 2019Q1

REPORT INFORMATION
  Report Type: Spontaneous
  Country: US (occurrence: US)
  Receive Date: 20180914
  Receipt Date: 20190221
  Transmission Date: 20190417
  Serious: No
  Sender: FDA-Public Use
  Company Number: US-PFIZER INC-2018368389

PATIENT
  Age: 69 Year
  Sex: Female

DRUGS (20)
  1. LINCOMYCIN HCL [Suspect]
     Active Substance: LINCOMYCIN HYDROCHLORIDE
     Dosage: UNK
  2. ALENDRONATE [Suspect]
     Active Substance: ALENDRONATE SODIUM
     Dosage: UNK
  3. ALLEGRA [Suspect]
     Active Substance: FEXOFENADINE HYDROCHLORIDE
     Dosage: UNK
  4. METHADONE [Suspect]
     Active Substance: METHADONE HYDROCHLORIDE
     Dosage: UNK
  5. SINGULAIR [Suspect]
     Active Substance: MONTELUKAST SODIUM
     Dosage: UNK
  6. PHENOTHIAZINE [Suspect]
     Active Substance: PHENOTHIAZINE
     Dosage: UNK
  7. BACLOFEN. [Suspect]
     Active Substance: BACLOFEN
     Dosage: UNK
  8. TETANUS ANTITOXIN [Suspect]
     Active Substance: TETANUS ANTITOXIN
     Dosage: UNK
  9. CLINDAMYCIN HCL [Suspect]
     Active Substance: CLINDAMYCIN HYDROCHLORIDE
     Dosage: UNK
  10. ERYTHROMYCIN. [Suspect]
     Active Substance: ERYTHROMYCIN
     Dosage: UNK
  11. PHENERGAN [Suspect]
     Active Substance: PROMETHAZINE HYDROCHLORIDE
     Dosage: UNK
  12. TORSEMIDE. [Suspect]
     Active Substance: TORSEMIDE
     Dosage: UNK
  13. ESTER (ASCORBIC ACID\CALCIUM\ZINC) [Suspect]
     Active Substance: ASCORBIC ACID\CALCIUM\ZINC
     Dosage: UNK
  14. ROFECOXIB [Suspect]
     Active Substance: ROFECOXIB
     Dosage: UNK
  15. NOVOCAINE [Suspect]
     Active Substance: PROCAINE
     Dosage: UNK
  16. PROPOXYPHENE. [Suspect]
     Active Substance: PROPOXYPHENE
     Dosage: UNK
  17. TETRACYCLINE HCL [Suspect]
     Active Substance: TETRACYCLINE HYDROCHLORIDE
     Dosage: UNK
  18. IBUPROFEN. [Suspect]
     Active Substance: IBUPROFEN
     Dosage: UNK
  19. ETODOLAC. [Suspect]
     Active Substance: ETODOLAC
     Dosage: UNK
  20. MELOXICAM. [Suspect]
     Active Substance: MELOXICAM
     Dosage: UNK

REACTIONS (2)
  - Drug hypersensitivity [None]
  - Drug hypersensitivity [Unknown]
